FAERS Safety Report 18410165 (Version 2)
Quarter: 2020Q4

REPORT INFORMATION
  Report Type: Spontaneous
  Country: DE (occurrence: DE)
  Receive Date: 20201021
  Receipt Date: 20201207
  Transmission Date: 20210114
  Serious: Yes (Other)
  Sender: FDA-Public Use
  Company Number: DE-TEVA-2020-DE-1840093

PATIENT
  Sex: Male

DRUGS (2)
  1. LEVOFLOXACIN RATIOPHARM [Suspect]
     Active Substance: LEVOFLOXACIN
     Indication: CHOLANGITIS
     Dosage: 2X500 MG, FOR 6 DAYS
     Route: 065
  2. METRONIDAZOLE. [Suspect]
     Active Substance: METRONIDAZOLE
     Indication: CHOLANGITIS
     Dosage: 2X400 MG, FOR 6 DAYS
     Route: 065

REACTIONS (2)
  - Polyneuropathy [Unknown]
  - Neurotoxicity [Unknown]

NARRATIVE: CASE EVENT DATE: 2020
